FAERS Safety Report 19214480 (Version 1)
Quarter: 2021Q2

REPORT INFORMATION
  Report Type: Spontaneous
  Country: US (occurrence: US)
  Receive Date: 20210505
  Receipt Date: 20210505
  Transmission Date: 20210717
  Serious: No
  Sender: FDA-Public Use
  Company Number: US-JNJFOC-20210454699

PATIENT
  Age: 45 Year
  Sex: Female

DRUGS (18)
  1. BENADRYL [Suspect]
     Active Substance: DIPHENHYDRAMINE HYDROCHLORIDE
     Indication: DIZZINESS
  2. PEPCID [Suspect]
     Active Substance: FAMOTIDINE
     Indication: ERYTHEMA
     Route: 065
  3. PEPCID [Suspect]
     Active Substance: FAMOTIDINE
     Indication: RASH
  4. PEPCID [Suspect]
     Active Substance: FAMOTIDINE
     Indication: NAUSEA
  5. STEROIDS [Concomitant]
     Active Substance: UNSPECIFIED INGREDIENT
     Indication: FEELING HOT
  6. COVID?19 VACCINE NOS. [Concomitant]
     Active Substance: COVID-19 VACCINE NOS
     Indication: PRODUCT USED FOR UNKNOWN INDICATION
     Route: 065
  7. PEPCID [Suspect]
     Active Substance: FAMOTIDINE
     Indication: FEELING HOT
  8. BENADRYL [Suspect]
     Active Substance: DIPHENHYDRAMINE HYDROCHLORIDE
     Indication: FEELING HOT
  9. BENADRYL [Suspect]
     Active Substance: DIPHENHYDRAMINE HYDROCHLORIDE
     Indication: RASH
  10. LEVOTHYROXINE. [Concomitant]
     Active Substance: LEVOTHYROXINE
     Indication: HYPERTHYROIDISM
     Dosage: 1 1/2 TABLET 5 DAYS A WEEK
     Route: 065
  11. LEVOTHYROXINE. [Concomitant]
     Active Substance: LEVOTHYROXINE
     Dosage: 1 TABLET 2 DAYS A WEEK
     Route: 065
  12. PEPCID [Suspect]
     Active Substance: FAMOTIDINE
     Indication: DIZZINESS
  13. BENADRYL [Suspect]
     Active Substance: DIPHENHYDRAMINE HYDROCHLORIDE
     Indication: NAUSEA
  14. STEROIDS [Concomitant]
     Active Substance: UNSPECIFIED INGREDIENT
     Indication: RASH
  15. STEROIDS [Concomitant]
     Active Substance: UNSPECIFIED INGREDIENT
     Indication: DIZZINESS
  16. STEROIDS [Concomitant]
     Active Substance: UNSPECIFIED INGREDIENT
     Indication: ERYTHEMA
     Route: 065
  17. BENADRYL [Suspect]
     Active Substance: DIPHENHYDRAMINE HYDROCHLORIDE
     Indication: ERYTHEMA
     Route: 048
  18. STEROIDS [Concomitant]
     Active Substance: UNSPECIFIED INGREDIENT
     Indication: NAUSEA

REACTIONS (3)
  - Off label use [Unknown]
  - Therapeutic response unexpected [Unknown]
  - Product use in unapproved indication [Unknown]
